FAERS Safety Report 6359454-6 (Version None)
Quarter: 2009Q3

REPORT INFORMATION
  Report Type: 
  Country: None (occurrence: None)
  Receive Date: 20090917
  Receipt Date: 20090910
  Transmission Date: 20100115
  Serious: Yes (Hospitalization)
  Sender: FDA-Public Use
  Company Number: US-ABBOTT-09P-163-0596336-00

PATIENT
  Sex: Female
  Weight: 62.652 kg

DRUGS (10)
  1. TRICOR [Suspect]
     Indication: BLOOD CHOLESTEROL INCREASED
  2. ARICEPT [Concomitant]
     Indication: DEMENTIA
  3. CELEXA [Concomitant]
     Indication: DEPRESSION
  4. SIMVASTATIN [Concomitant]
     Indication: BLOOD CHOLESTEROL INCREASED
  5. PROPRANOLOL [Concomitant]
     Indication: HYPERTENSION
  6. LORAZEPAM [Concomitant]
     Indication: ANXIETY
  7. AVAPRO [Concomitant]
     Indication: HYPERTENSION
  8. AMLODIPINE [Concomitant]
     Indication: DRUG USE FOR UNKNOWN INDICATION
  9. ASPIRIN [Concomitant]
     Indication: DRUG USE FOR UNKNOWN INDICATION
     Dates: end: 20090601
  10. ALEVE [Concomitant]
     Indication: DRUG USE FOR UNKNOWN INDICATION
     Dates: end: 20090601

REACTIONS (4)
  - ABDOMINAL PAIN UPPER [None]
  - GASTRIC ULCER [None]
  - HAEMATEMESIS [None]
  - NAUSEA [None]
